FAERS Safety Report 5051012-9 (Version None)
Quarter: 2006Q3

REPORT INFORMATION
  Report Type: 
  Country: None (occurrence: None)
  Receive Date: 20060714
  Receipt Date: 20060615
  Transmission Date: 20061208
  Serious: Yes (Hospitalization)
  Sender: FDA-Public Use
  Company Number: 2006SE03417

PATIENT
  Age: 21624 Day
  Sex: Male

DRUGS (3)
  1. OMEPRAZOLE [Suspect]
     Indication: REFLUX OESOPHAGITIS
     Route: 048
     Dates: start: 20060511, end: 20060511
  2. OMEPRAZOLE [Suspect]
     Indication: EROSIVE DUODENITIS
     Route: 048
     Dates: start: 20060511, end: 20060511
  3. BENTELAN [Concomitant]

REACTIONS (1)
  - ANAPHYLACTIC SHOCK [None]
